FAERS Safety Report 7390429-4 (Version None)
Quarter: 2011Q2

REPORT INFORMATION
  Report Type: 
  Country: None (occurrence: None)
  Receive Date: 20110401
  Receipt Date: 20110330
  Transmission Date: 20111010
  Serious: Yes (Hospitalization)
  Sender: FDA-Public Use
  Company Number: CA-ABBOTT-95P-028-0067808-00

PATIENT
  Age: 53 Year
  Sex: Male

DRUGS (10)
  1. BIAXIN [Interacting]
     Indication: PNEUMONIA
  2. BIAXIN [Interacting]
     Indication: RESPIRATORY TRACT INFECTION
  3. NITRAZEPAM [Concomitant]
  4. FLUOXETINE [Interacting]
     Indication: DEPRESSION
     Dosage: EVERY DAY
     Route: 048
  5. NITRAZEPAM [Concomitant]
     Indication: DEPRESSION
     Route: 048
  6. BIAXIN [Interacting]
     Indication: COUGH
  7. BIAXIN [Interacting]
     Indication: LOWER RESPIRATORY TRACT INFECTION
  8. BIAXIN [Suspect]
     Indication: GASTRIC LAVAGE
     Route: 048
     Dates: start: 19930220, end: 19930222
  9. BIAXIN [Interacting]
     Indication: PLEURITIC PAIN
  10. FLUOXETINE [Interacting]

REACTIONS (8)
  - TREMOR [None]
  - HALLUCINATION [None]
  - CONFUSIONAL STATE [None]
  - AGITATION [None]
  - PSYCHOTIC DISORDER [None]
  - DELIRIUM [None]
  - DRUG INTERACTION [None]
  - COGNITIVE DISORDER [None]
